FAERS Safety Report 13277444 (Version 2)
Quarter: 2018Q4

REPORT INFORMATION
  Report Type: Report from Study
  Country: US (occurrence: US)
  Receive Date: 20170228
  Receipt Date: 20181119
  Transmission Date: 20190204
  Serious: No
  Sender: FDA-Public Use
  Company Number: US-SA-2017SA029310

PATIENT
  Age: 65 Year
  Sex: Female

DRUGS (2)
  1. ELIGLUSTAT. [Suspect]
     Active Substance: ELIGLUSTAT
     Indication: GAUCHER^S DISEASE
     Dosage: 84 U, BID
     Route: 048
     Dates: start: 20150714
  2. ELELYSO [Concomitant]
     Active Substance: TALIGLUCERASE ALFA
     Indication: GAUCHER^S DISEASE
     Dosage: EVERY 2 WEEKS

REACTIONS (2)
  - Unevaluable event [Unknown]
  - Hypersensitivity [Recovered/Resolved]
